FAERS Safety Report 10417123 (Version 1)
Quarter: 2014Q3

REPORT INFORMATION
  Report Type: Report from Study
  Country: US (occurrence: US)
  Receive Date: 20140828
  Receipt Date: 20140828
  Transmission Date: 20150326
  Serious: Yes (Other)
  Sender: FDA-Public Use
  Company Number: US-BAXTER-2014BAX050159

PATIENT

DRUGS (4)
  1. GAMMAGARD LIQUID [Suspect]
     Active Substance: HUMAN IMMUNOGLOBULIN G
     Indication: PROPHYLAXIS AGAINST TRANSPLANT REJECTION
     Dosage: 1 ROUND
     Route: 042
  2. RITUXIMAB [Suspect]
     Active Substance: RITUXIMAB
     Indication: PROPHYLAXIS AGAINST TRANSPLANT REJECTION
     Dosage: 1 ROUND
     Route: 065
  3. GAMMAGARD LIQUID [Suspect]
     Active Substance: HUMAN IMMUNOGLOBULIN G
     Indication: OFF LABEL USE
  4. BORTEZOMIB [Suspect]
     Active Substance: BORTEZOMIB
     Indication: PROPHYLAXIS AGAINST TRANSPLANT REJECTION
     Dosage: 4 DOSES
     Route: 065

REACTIONS (1)
  - Graft loss [Not Recovered/Not Resolved]
